FAERS Safety Report 5481716-5 (Version None)
Quarter: 2007Q3

REPORT INFORMATION
  Report Type: 
  Country: None (occurrence: None)
  Receive Date: 20070917
  Receipt Date: 20070108
  Transmission Date: 20080115
  Serious: Yes (Hospitalization)
  Sender: FDA-Public Use
  Company Number: S07-USA-00072-01

PATIENT
  Age: 79 Year
  Sex: Male

DRUGS (6)
  1. CELEXA [Suspect]
     Indication: DEMENTIA ALZHEIMER'S TYPE
     Dosage: 20 MG QD PO
     Route: 048
     Dates: end: 20061001
  2. CELEXA [Suspect]
     Indication: DEPRESSION
     Dosage: 20 MG QD PO
     Route: 048
     Dates: end: 20061001
  3. ARICEPT [Concomitant]
  4. K-CLOR (POTASSIUM) [Concomitant]
  5. FOSINOPRIL AND HYDROCHLOROTHIAZIDE [Concomitant]
  6. DOXYCYCLINE [Concomitant]

REACTIONS (1)
  - CEREBROVASCULAR ACCIDENT [None]
